FAERS Safety Report 9670977 (Version 3)
Quarter: 2013Q4

REPORT INFORMATION
  Report Type: Report from Study
  Country: CA (occurrence: CA)
  Receive Date: 20131106
  Receipt Date: 20131113
  Transmission Date: 20140711
  Serious: Yes (Other)
  Sender: FDA-Public Use
  Company Number: CA-JNJFOC-20130513753

PATIENT
  Age: 26 Year
  Sex: Female
  Weight: 61 kg

DRUGS (11)
  1. REMICADE [Suspect]
     Indication: PSORIATIC ARTHROPATHY
     Route: 042
     Dates: start: 20130514
  2. REMICADE [Suspect]
     Indication: PSORIATIC ARTHROPATHY
     Route: 042
     Dates: start: 20121227
  3. REMICADE [Suspect]
     Indication: PSORIATIC ARTHROPATHY
     Dosage: TOTAL NUMBER OF INFUSIONS RECEIVED: 6 DOSES
     Route: 042
     Dates: start: 20130625, end: 20130625
  4. SULFASALAZINE [Concomitant]
     Route: 048
  5. NAPROXEN [Concomitant]
     Dosage: PRN
     Route: 065
  6. BENADRYL [Concomitant]
     Indication: PREMEDICATION
     Route: 042
     Dates: start: 20130625
  7. TYLENOL [Concomitant]
     Indication: PREMEDICATION
     Route: 048
     Dates: start: 20130625
  8. SOLUCORTEF [Concomitant]
     Indication: PREMEDICATION
     Route: 042
     Dates: start: 20130625
  9. ARTHROTEC [Concomitant]
     Route: 065
  10. CYCLOSPORINE [Concomitant]
     Dosage: IN PM
     Route: 065
  11. CYCLOSPORINE [Concomitant]
     Route: 065

REACTIONS (6)
  - Flushing [Recovered/Resolved]
  - Asthma [Recovered/Resolved]
  - Pruritus [Recovered/Resolved]
  - Chills [Recovered/Resolved]
  - Infusion related reaction [Recovered/Resolved]
  - Chest discomfort [Recovered/Resolved]
